FAERS Safety Report 6631594-3 (Version None)
Quarter: 2010Q1

REPORT INFORMATION
  Report Type: 
  Country: None (occurrence: None)
  Receive Date: 20100312
  Receipt Date: 20100303
  Transmission Date: 20100710
  Serious: Yes (Hospitalization)
  Sender: FDA-Public Use
  Company Number: GB-BRISTOL-MYERS SQUIBB COMPANY-15004476

PATIENT
  Age: 38 Year
  Sex: Female

DRUGS (3)
  1. ABILIFY [Suspect]
     Dosage: 9.75 MG IN MORNING; IM
  2. SODIUM VALPROATE [Suspect]
     Dosage: INCREASED TO 2500 MG
  3. FOLIC ACID [Suspect]

REACTIONS (2)
  - BIPOLAR DISORDER [None]
  - DRUG ABUSE [None]
